FAERS Safety Report 9598729 (Version 1)
Quarter: 2013Q4

REPORT INFORMATION
  Report Type: Spontaneous
  Country: US (occurrence: US)
  Receive Date: 20131004
  Receipt Date: 20131004
  Transmission Date: 20140711
  Serious: No
  Sender: FDA-Public Use
  Company Number: US-AMGEN-USASP2013025715

PATIENT
  Age: 49 Year
  Sex: Female

DRUGS (5)
  1. ENBREL [Suspect]
     Indication: PRODUCT USED FOR UNKNOWN INDICATION
     Dosage: 50 MG, QWK
     Route: 058
  2. FISH OIL [Concomitant]
     Dosage: UNK
  3. VITAMIN E                          /00110501/ [Concomitant]
     Dosage: 1000 UNIT, UNK
  4. LISINOPRIL [Concomitant]
     Dosage: 20 MG, UNK
  5. FAMVIR                             /01226201/ [Concomitant]
     Dosage: 250 MG, UNK

REACTIONS (2)
  - Injection site haemorrhage [Unknown]
  - Contusion [Unknown]
